FAERS Safety Report 23541643 (Version 2)
Quarter: 2024Q1

REPORT INFORMATION
  Report Type: Report from Study
  Country: CA (occurrence: CA)
  Receive Date: 20240219
  Receipt Date: 20240222
  Transmission Date: 20240410
  Serious: Yes (Other)
  Sender: FDA-Public Use
  Company Number: CA-ABBVIE-5643676

PATIENT
  Sex: Male

DRUGS (1)
  1. SKYRIZI [Suspect]
     Active Substance: RISANKIZUMAB-RZAA
     Indication: Psoriasis
     Route: 058
     Dates: start: 20231124

REACTIONS (5)
  - Foot operation [Unknown]
  - Brain neoplasm malignant [Unknown]
  - Gait inability [Unknown]
  - Spinal disorder [Unknown]
  - Mobility decreased [Unknown]
